FAERS Safety Report 5384531-6 (Version None)
Quarter: 2007Q3

REPORT INFORMATION
  Report Type: 
  Country: None (occurrence: None)
  Receive Date: 20070711
  Receipt Date: 20060828
  Transmission Date: 20080115
  Serious: No
  Sender: FDA-Public Use
  Company Number: US-AMGEN-KDL191582

PATIENT
  Sex: Male

DRUGS (1)
  1. KINERET [Suspect]
     Indication: RHEUMATOID ARTHRITIS
     Route: 058
     Dates: start: 20060614

REACTIONS (6)
  - ASTHENIA [None]
  - COGNITIVE DISORDER [None]
  - FACIAL PALSY [None]
  - MUSCULAR WEAKNESS [None]
  - PYREXIA [None]
  - SPEECH DISORDER [None]
